FAERS Safety Report 5011478-7 (Version None)
Quarter: 2006Q2

REPORT INFORMATION
  Report Type: 
  Country: None (occurrence: None)
  Receive Date: 20060525
  Receipt Date: 20060509
  Transmission Date: 20061013
  Serious: Yes (Hospitalization, Disabling)
  Sender: FDA-Public Use
  Company Number: AT-MERCK-0605AUT00006

PATIENT
  Age: 78 Year
  Sex: Female

DRUGS (7)
  1. FOSAMAX [Suspect]
     Route: 048
     Dates: end: 20060201
  2. AMLODIPINE BESYLATE [Concomitant]
     Route: 065
  3. PANTOPRAZOLE SODIUM [Concomitant]
     Route: 065
  4. NICORANDIL [Concomitant]
     Route: 065
  5. FENTANYL [Concomitant]
     Route: 065
  6. FELODIPINE [Concomitant]
     Route: 065
  7. DONEPEZIL HYDROCHLORIDE [Concomitant]
     Route: 065

REACTIONS (2)
  - HIP FRACTURE [None]
  - OSTEONECROSIS [None]
